FAERS Safety Report 5376674-8 (Version None)
Quarter: 2007Q2

REPORT INFORMATION
  Report Type: 
  Country: None (occurrence: None)
  Receive Date: 20070629
  Receipt Date: 20070618
  Transmission Date: 20071010
  Serious: Yes (Hospitalization)
  Sender: FDA-Public Use
  Company Number: 150002L07JPN

PATIENT
  Age: 30 Year
  Sex: Female

DRUGS (2)
  1. CHORIONIC GONADOTROPIN [Suspect]
     Indication: INFERTILITY FEMALE
     Dates: start: 20040526
  2. MENOTROPINS [Suspect]
     Indication: INFERTILITY FEMALE
     Dosage: 150 IU
     Dates: start: 20040513

REACTIONS (8)
  - C-REACTIVE PROTEIN INCREASED [None]
  - HAEMATOCRIT DECREASED [None]
  - HAEMOGLOBIN DECREASED [None]
  - MENSTRUAL DISORDER [None]
  - OVARIAN HYPERSTIMULATION SYNDROME [None]
  - OVARIAN NECROSIS [None]
  - OVARIAN TORSION [None]
  - WHITE BLOOD CELL COUNT INCREASED [None]
